FAERS Safety Report 20770143 (Version 1)
Quarter: 2022Q2

REPORT INFORMATION
  Report Type: Spontaneous
  Country: AT (occurrence: AT)
  Receive Date: 20220429
  Receipt Date: 20220429
  Transmission Date: 20220720
  Serious: Yes (Hospitalization)
  Sender: FDA-Public Use
  Company Number: AT-JNJFOC-20220446255

PATIENT
  Age: 28 Year
  Sex: Female
  Weight: 60 kg

DRUGS (1)
  1. REMICADE [Suspect]
     Active Substance: INFLIXIMAB
     Indication: Crohn^s disease
     Dosage: 300 MG INTRAVENOUS WEEK 0-2-6, THEN EVERY 8 WEEKS
     Route: 042
     Dates: start: 202107

REACTIONS (1)
  - Dysaesthesia [Recovered/Resolved]

NARRATIVE: CASE EVENT DATE: 20210901
